FAERS Safety Report 5172441-9 (Version None)
Quarter: 2006Q4

REPORT INFORMATION
  Report Type: 
  Country: None (occurrence: None)
  Receive Date: 20061205
  Receipt Date: 20061128
  Transmission Date: 20070319
  Serious: Yes (Life-Threatening, Hospitalization)
  Sender: FDA-Public Use
  Company Number: 028-C5013-06111278

PATIENT
  Age: 59 Year
  Sex: Female
  Weight: 43.7 kg

DRUGS (2)
  1. REVLIMID [Suspect]
     Indication: MULTIPLE MYELOMA
     Dosage: 25 MG, DAILY, ORAL
     Route: 048
     Dates: start: 20060302, end: 20061109
  2. DEXAMETHASONE TAB [Suspect]
     Indication: MULTIPLE MYELOMA
     Dosage: 40 MG, DAYS 1-4, ORAL
     Route: 048
     Dates: start: 20060302, end: 20061109

REACTIONS (5)
  - BLOOD CULTURE POSITIVE [None]
  - NEUTROPENIA [None]
  - PNEUMONIA STREPTOCOCCAL [None]
  - SHOCK [None]
  - SOMNOLENCE [None]
